FAERS Safety Report 6618081-3 (Version None)
Quarter: 2010Q1

REPORT INFORMATION
  Report Type: 
  Country: None (occurrence: None)
  Receive Date: 20100308
  Receipt Date: 20100226
  Transmission Date: 20100710
  Serious: Yes (Life-Threatening, Hospitalization)
  Sender: FDA-Public Use
  Company Number: JP-AMGEN-US387221

PATIENT
  Sex: Female
  Weight: 50 kg

DRUGS (3)
  1. ENBREL [Suspect]
     Indication: RHEUMATOID ARTHRITIS
     Route: 058
     Dates: end: 20100101
  2. AMARYL [Concomitant]
     Indication: DIABETES MELLITUS
     Dosage: 1 DF/DAY
     Route: 048
  3. ADALAT [Concomitant]
     Indication: HYPERTENSION
     Dosage: 1 DF/DAY
     Route: 048

REACTIONS (4)
  - DISSEMINATED INTRAVASCULAR COAGULATION [None]
  - HAEMORRHAGE [None]
  - SEPSIS [None]
  - SURGERY [None]
